FAERS Safety Report 25609467 (Version 2)
Quarter: 2025Q4

REPORT INFORMATION
  Report Type: Report from Study
  Country: US (occurrence: US)
  Receive Date: 20250727
  Receipt Date: 20251030
  Transmission Date: 20260118
  Serious: Yes (Hospitalization)
  Sender: ABBVIE
  Company Number: US-ABBVIE-6383115

PATIENT
  Age: 45 Year
  Sex: Male

DRUGS (6)
  1. SKYRIZI [Suspect]
     Active Substance: RISANKIZUMAB-RZAA
     Indication: Crohn^s disease
     Dosage: FORM STRENGTH: 360MG/2.4M, AT WEEK 12
     Route: 058
     Dates: start: 20250227, end: 20250227
  2. SKYRIZI [Suspect]
     Active Substance: RISANKIZUMAB-RZAA
     Dosage: STRENGTH: 360MG/2.4M
     Route: 058
     Dates: start: 20250807
  3. SKYRIZI [Suspect]
     Active Substance: RISANKIZUMAB-RZAA
     Route: 058
  4. SKYRIZI [Suspect]
     Active Substance: RISANKIZUMAB-RZAA
     Indication: Crohn^s disease
     Dosage: TIME INTERVAL: TOTAL: AT WEEK 0
     Route: 042
     Dates: start: 20241107, end: 20241107
  5. SKYRIZI [Suspect]
     Active Substance: RISANKIZUMAB-RZAA
     Indication: Crohn^s disease
     Dosage: TIME INTERVAL: TOTAL: AT WEEK 4
     Route: 042
     Dates: start: 20250102, end: 20250102
  6. SKYRIZI [Suspect]
     Active Substance: RISANKIZUMAB-RZAA
     Indication: Crohn^s disease
     Dosage: TIME INTERVAL: TOTAL: AT WEEK 8
     Route: 042
     Dates: start: 20250130, end: 20250130

REACTIONS (7)
  - Constipation [Unknown]
  - Gastrointestinal sounds abnormal [Recovering/Resolving]
  - Crohn^s disease [Unknown]
  - Rash [Recovered/Resolved]
  - Faeces soft [Unknown]
  - Frequent bowel movements [Recovering/Resolving]
  - Flatulence [Unknown]

NARRATIVE: CASE EVENT DATE: 20250101
